FAERS Safety Report 22799431 (Version 13)
Quarter: 2024Q1

REPORT INFORMATION
  Report Type: Spontaneous
  Country: US (occurrence: US)
  Receive Date: 20230808
  Receipt Date: 20240223
  Transmission Date: 20240410
  Serious: No
  Sender: FDA-Public Use
  Company Number: US-PFIZER INC-202300270803

PATIENT
  Age: 69 Year
  Sex: Male

DRUGS (3)
  1. BRAFTOVI [Suspect]
     Active Substance: ENCORAFENIB
     Indication: Mucinous adenocarcinoma of appendix
     Dosage: 4 DF (300 MG) DAILY/TAKE 300 MG IN THE MORNING
     Route: 048
     Dates: start: 2022
  2. BRAFTOVI [Suspect]
     Active Substance: ENCORAFENIB
     Indication: Gastrointestinal cancer metastatic
     Dosage: 75 MG
     Route: 048
     Dates: start: 2022
  3. MEKTOVI [Concomitant]
     Active Substance: BINIMETINIB
     Dosage: 3 TABS (45 MG)  TWICE DAILY
     Route: 048

REACTIONS (2)
  - Off label use [Unknown]
  - Rash [Unknown]
